FAERS Safety Report 16919514 (Version 1)
Quarter: 2019Q4

REPORT INFORMATION
  Report Type: Spontaneous
  Country: US (occurrence: US)
  Receive Date: 20191014
  Receipt Date: 20191014
  Transmission Date: 20200122
  Serious: Yes (Other)
  Sender: FDA-Public Use
  Company Number: None

PATIENT
  Age: 77 Year
  Sex: Female
  Weight: 46.71 kg

DRUGS (18)
  1. CLINDAGEL [Concomitant]
     Active Substance: CLINDAMYCIN PHOSPHATE
  2. BENADRYL [Concomitant]
     Active Substance: DIPHENHYDRAMINE HYDROCHLORIDE
  3. MYLANTA [Concomitant]
     Active Substance: ALUMINUM HYDROXIDE\DIMETHICONE\MAGNESIUM HYDROXIDE
  4. NAPROXEN. [Concomitant]
     Active Substance: NAPROXEN
  5. ASPIRIN. [Concomitant]
     Active Substance: ASPIRIN
  6. HYDROCHLOROTHIAZIDE. [Concomitant]
     Active Substance: HYDROCHLOROTHIAZIDE
  7. MULTIVITAMIN [Concomitant]
     Active Substance: VITAMINS
  8. AVAPRO [Concomitant]
     Active Substance: IRBESARTAN
  9. KEFLEX [Concomitant]
     Active Substance: CEPHALEXIN
  10. LAMISIL [Concomitant]
     Active Substance: TERBINAFINE HYDROCHLORIDE
  11. CAPECTIABINE 500MG UNKNOWN [Suspect]
     Active Substance: CAPECITABINE
     Indication: BREAST CANCER FEMALE
     Route: 048
     Dates: start: 20190726
  12. PROCHLORPERAZINE. [Concomitant]
     Active Substance: PROCHLORPERAZINE
  13. LIDOCAINE-PRILOCAINE [Concomitant]
     Active Substance: LIDOCAINE\PRILOCAINE
  14. DECADRON [Concomitant]
     Active Substance: DEXAMETHASONE
  15. LEVOTHYROXINE. [Concomitant]
     Active Substance: LEVOTHYROXINE
  16. MARINOL [Concomitant]
     Active Substance: DRONABINOL
  17. ZOFRAN [Concomitant]
     Active Substance: ONDANSETRON HYDROCHLORIDE
  18. LIDOCAINE VISCOUS [Concomitant]
     Active Substance: LIDOCAINE HYDROCHLORIDE

REACTIONS (2)
  - Gait disturbance [None]
  - Neuropathy peripheral [None]

NARRATIVE: CASE EVENT DATE: 20191014
